FAERS Safety Report 25755189 (Version 1)
Quarter: 2025Q3

REPORT INFORMATION
  Report Type: Spontaneous
  Country: CN (occurrence: CN)
  Receive Date: 20250903
  Receipt Date: 20250903
  Transmission Date: 20251021
  Serious: Yes (Hospitalization, Other)
  Sender: BAXTER
  Company Number: None

PATIENT
  Age: 43 Year
  Sex: Male
  Weight: 72 kg

DRUGS (9)
  1. CYCLOPHOSPHAMIDE [Suspect]
     Active Substance: CYCLOPHOSPHAMIDE
     Indication: Acute lymphocytic leukaemia
     Dosage: 0.5 G, BID, D1-D3
     Route: 041
     Dates: start: 20250802, end: 20250804
  2. SODIUM CHLORIDE [Suspect]
     Active Substance: SODIUM CHLORIDE
     Dosage: 100 ML, BID, 0.9% (Q12H D1-D3) WITH CYCLOPHOSPHAMIDE
     Route: 041
     Dates: start: 20250802, end: 20250804
  3. SODIUM CHLORIDE [Suspect]
     Active Substance: SODIUM CHLORIDE
     Dosage: 40 ML, QD, 0.9%, D4 WITH VINDESINE SULFATE
     Route: 041
     Dates: start: 20250805, end: 20250805
  4. SODIUM CHLORIDE [Suspect]
     Active Substance: SODIUM CHLORIDE
     Dosage: 100 ML, QD, 0.9%, D1-D4 WITH DEXAMETHASONE SODIUM PHOSPHATE
     Route: 041
     Dates: start: 20250802, end: 20250805
  5. DEXTROSE [Suspect]
     Active Substance: DEXTROSE MONOHYDRATE
     Dosage: 40 ML, QD, 5%, D4 WITH EPIRUBICIN HYDROCHLORIDE
     Route: 041
     Dates: start: 20250805, end: 20250805
  6. DEXAMETHASONE SODIUM PHOSPHATE [Suspect]
     Active Substance: DEXAMETHASONE SODIUM PHOSPHATE
     Indication: Acute lymphocytic leukaemia
     Dosage: 40 MG, QD, D1-D4
     Route: 041
     Dates: start: 20250802, end: 20250805
  7. EPIRUBICIN [Suspect]
     Active Substance: EPIRUBICIN
     Indication: Acute lymphocytic leukaemia
     Dosage: 60 MG, QD, D4
     Route: 041
     Dates: start: 20250805, end: 20250805
  8. VINDESINE SULFATE [Suspect]
     Active Substance: VINDESINE SULFATE
     Indication: Acute lymphocytic leukaemia
     Dosage: 5 MG, QD, D4
     Route: 041
     Dates: start: 20250805, end: 20250805
  9. PEGASPARGASE [Concomitant]
     Active Substance: PEGASPARGASE
     Indication: Acute lymphocytic leukaemia
     Route: 065
     Dates: start: 20250802

REACTIONS (1)
  - Myelosuppression [Recovering/Resolving]

NARRATIVE: CASE EVENT DATE: 20250814
